FAERS Safety Report 9783833 (Version 1)
Quarter: 2013Q4

REPORT INFORMATION
  Report Type: Spontaneous
  Country: US (occurrence: US)
  Receive Date: 20131226
  Receipt Date: 20131226
  Transmission Date: 20140711
  Serious: No
  Sender: FDA-Public Use
  Company Number: US-PFIZER INC-2013365413

PATIENT
  Age: 49 Year
  Sex: Female
  Weight: 58.05 kg

DRUGS (1)
  1. ADVIL [Suspect]
     Indication: HEADACHE
     Dosage: UNK, ONLY ONCE
     Route: 048
     Dates: start: 20131213, end: 20131213

REACTIONS (1)
  - Feeling abnormal [Recovered/Resolved]
